FAERS Safety Report 6998102-9 (Version None)
Quarter: 2010Q3

REPORT INFORMATION
  Report Type: 
  Country: None (occurrence: None)
  Receive Date: 20100920
  Receipt Date: 20100331
  Transmission Date: 20110219
  Serious: No
  Sender: FDA-Public Use
  Company Number: US-ASTRAZENECA-2010SE15878

PATIENT
  Age: 40 Year
  Sex: Male

DRUGS (5)
  1. SEROQUEL [Suspect]
     Dosage: 25 MG TWICE A DAY THEN TAKE 2 TABS TWICE A DAY FOR 3 DAYS THEN TAKE 4 TABS TWICE A DAY FOR 25 DAYS
     Route: 048
     Dates: start: 20031002, end: 20041002
  2. SERTRALINE HYDROCHLORIDE [Concomitant]
     Route: 048
     Dates: start: 20040601, end: 20050601
  3. TRAZODONE HCL [Concomitant]
     Route: 048
     Dates: start: 20040601, end: 20050601
  4. SIMVASTATIN [Concomitant]
     Indication: BLOOD CHOLESTEROL
     Route: 048
     Dates: start: 20040601, end: 20050601
  5. MOMETASONE FUROATE [Concomitant]
     Dosage: 20 PUFF BID

REACTIONS (5)
  - GASTROOESOPHAGEAL REFLUX DISEASE [None]
  - HYPERLIPIDAEMIA [None]
  - REFRACTION DISORDER [None]
  - TYPE 2 DIABETES MELLITUS [None]
  - URINARY TRACT INFECTION [None]
